FAERS Safety Report 5614938-0 (Version None)
Quarter: 2008Q1

REPORT INFORMATION
  Report Type: 
  Country: None (occurrence: None)
  Receive Date: 20080204
  Receipt Date: 20080204
  Transmission Date: 20080703
  Serious: Yes (Death)
  Sender: FDA-Public Use
  Company Number: None

PATIENT
  Age: 71 Year
  Sex: Female

DRUGS (9)
  1. WARFARIN SODIUM [Suspect]
     Indication: ATRIAL FIBRILLATION
     Dosage: 2MG PO DAILY
     Route: 048
     Dates: end: 20071020
  2. AMIODARONE HCL [Suspect]
     Dosage: 200 MG BID PO
     Route: 048
     Dates: start: 20071004, end: 20071027
  3. ASPIRIN [Concomitant]
  4. LOPRESSOR [Concomitant]
  5. LIPITOR [Concomitant]
  6. BUMOX [Concomitant]
  7. POTASSIUM CHLORIDE [Concomitant]
  8. PEPCID [Concomitant]
  9. FERROUS SULFATE TAB [Concomitant]

REACTIONS (2)
  - INTERNATIONAL NORMALISED RATIO INCREASED [None]
  - PERITONEAL HAEMORRHAGE [None]
